FAERS Safety Report 12410161 (Version 1)
Quarter: 2016Q2

REPORT INFORMATION
  Report Type: Spontaneous
  Country: US (occurrence: None)
  Receive Date: 20160526
  Receipt Date: 20160526
  Transmission Date: 20160815
  Serious: No
  Sender: FDA-Public Use
  Company Number: None

PATIENT
  Sex: Female

DRUGS (7)
  1. TANZEUM [Concomitant]
     Active Substance: ALBIGLUTIDE
  2. TOUJEO [Concomitant]
     Active Substance: INSULIN GLARGINE
  3. METFORMIN [Concomitant]
     Active Substance: METFORMIN HYDROCHLORIDE
  4. HUMALOG [Suspect]
     Active Substance: INSULIN LISPRO
  5. METFORMIN [Suspect]
     Active Substance: METFORMIN HYDROCHLORIDE
  6. XIGDUEO [Concomitant]
  7. ER [Concomitant]

REACTIONS (3)
  - Malaise [None]
  - Decreased appetite [None]
  - Abdominal discomfort [None]
